FAERS Safety Report 24021789 (Version 2)
Quarter: 2024Q2

REPORT INFORMATION
  Report Type: Report from Study
  Country: JP (occurrence: JP)
  Receive Date: 20240627
  Receipt Date: 20240627
  Transmission Date: 20240716
  Serious: No
  Sender: FDA-Public Use
  Company Number: JP-CHUGAI-2022047628

PATIENT
  Age: 76 Year
  Sex: Female

DRUGS (4)
  1. VABYSMO [Suspect]
     Active Substance: FARICIMAB\FARICIMAB-SVOA
     Indication: Neovascular age-related macular degeneration
     Dosage: FORM STRENGTH: 120 MG/ML?6 MILLIGRAM, RIGHT EYE
     Route: 050
     Dates: start: 20221117, end: 20221117
  2. VABYSMO [Suspect]
     Active Substance: FARICIMAB\FARICIMAB-SVOA
     Dosage: FORM STRENGTH: 120 MG/ML?6 MILLIGRAM, RIGHT EYE
     Route: 050
     Dates: start: 20221216, end: 20221216
  3. VABYSMO [Suspect]
     Active Substance: FARICIMAB\FARICIMAB-SVOA
     Dosage: FORM STRENGTH: 120 MG/ML?6 MILLIGRAM, RIGHT EYE
     Route: 050
     Dates: start: 20230525, end: 20230525
  4. VABYSMO [Suspect]
     Active Substance: FARICIMAB\FARICIMAB-SVOA
     Dosage: FORM STRENGTH: 120 MG/ML?RIGHT EYE??ON 29/FEB/2024, RECEIVED LAST DOSE.
     Route: 050
     Dates: start: 20240229

REACTIONS (1)
  - Conjunctival haemorrhage [Recovered/Resolved]

NARRATIVE: CASE EVENT DATE: 20221117
